FAERS Safety Report 15015409 (Version 5)
Quarter: 2018Q3

REPORT INFORMATION
  Report Type: Report from Study
  Country: CA (occurrence: CA)
  Receive Date: 20180615
  Receipt Date: 20180814
  Transmission Date: 20181010
  Serious: Yes (Hospitalization)
  Sender: FDA-Public Use
  Company Number: CA-GLAXOSMITHKLINE-CA2018GSK106200

PATIENT
  Age: 73 Year
  Sex: Female

DRUGS (1)
  1. MEPOLIZUMAB [Suspect]
     Active Substance: MEPOLIZUMAB
     Indication: ASTHMA
     Dosage: 100 MG, Z (MONTHLY)
     Route: 042
     Dates: start: 20180316

REACTIONS (8)
  - Dizziness [Unknown]
  - Hypotension [Unknown]
  - Malaise [Unknown]
  - Fall [Unknown]
  - Chest pain [Unknown]
  - Peripheral swelling [Unknown]
  - Feeling abnormal [Unknown]
  - Localised infection [Unknown]

NARRATIVE: CASE EVENT DATE: 20180705
